FAERS Safety Report 7042877-X (Version None)
Quarter: 2010Q4

REPORT INFORMATION
  Report Type: 
  Country: None (occurrence: None)
  Receive Date: 20101013
  Receipt Date: 20091016
  Transmission Date: 20110411
  Serious: No
  Sender: FDA-Public Use
  Company Number: US-ASTRAZENECA-2009SE20804

PATIENT
  Age: 61 Year
  Sex: Female

DRUGS (7)
  1. SYMBICORT [Suspect]
     Indication: PULMONARY GRANULOMA
     Dosage: 320 MCG
     Route: 055
     Dates: start: 20090201
  2. INSULIN [Concomitant]
     Indication: DIABETES MELLITUS
  3. LISINOPRIL [Concomitant]
  4. METFORMIN [Concomitant]
  5. GLUCOSIDE [Concomitant]
  6. SIMVASTATIN [Concomitant]
  7. TRAVATAN Z [Concomitant]

REACTIONS (2)
  - DYSPNOEA [None]
  - WHEEZING [None]
